FAERS Safety Report 16902135 (Version 2)
Quarter: 2019Q4

REPORT INFORMATION
  Report Type: Spontaneous
  Country: FR (occurrence: FR)
  Receive Date: 20191010
  Receipt Date: 20191211
  Transmission Date: 20200122
  Serious: Yes (Hospitalization, Other)
  Sender: FDA-Public Use
  Company Number: FR-AUROBINDO-AUR-APL-2019-065266

PATIENT
  Age: 66 Year
  Sex: Male
  Weight: 83.8 kg

DRUGS (6)
  1. PACLITAXEL. [Interacting]
     Active Substance: PACLITAXEL
     Indication: OESOPHAGEAL ADENOCARCINOMA
     Dosage: 168 MILLIGRAM, 1 TOTAL
     Route: 041
     Dates: start: 20190308, end: 20190308
  2. LEVOCETIRIZINE [Concomitant]
     Active Substance: LEVOCETIRIZINE
     Indication: PROPHYLAXIS
     Dosage: UNK, INCONNUE
     Route: 048
     Dates: start: 20190308
  3. SETOFILM [Concomitant]
     Active Substance: ONDANSETRON
     Indication: PROPHYLAXIS
     Dosage: UNK
     Route: 048
     Dates: start: 20190308
  4. CARBOPLATIN. [Suspect]
     Active Substance: CARBOPLATIN
     Indication: OESOPHAGEAL ADENOCARCINOMA
     Dosage: 230 MILLIGRAM, 1 TOTAL
     Route: 041
     Dates: start: 20190308
  5. SETOFILM [Concomitant]
     Active Substance: ONDANSETRON
     Indication: PROPHYLAXIS
     Dosage: UNK, INCONNUE
     Route: 048
     Dates: start: 20190308
  6. RANITIDINE MYLAN [Concomitant]
     Active Substance: RANITIDINE HYDROCHLORIDE
     Indication: PROPHYLAXIS
     Dosage: UNK, INCONNUE
     Route: 048
     Dates: start: 20190308

REACTIONS (5)
  - Drug interaction [Recovered/Resolved]
  - Urinary tract infection [Recovered/Resolved]
  - Escherichia sepsis [Recovered/Resolved]
  - Aplasia [Recovered/Resolved]
  - Abscess limb [Recovered/Resolved]

NARRATIVE: CASE EVENT DATE: 20190315
